FAERS Safety Report 6220985-0 (Version None)
Quarter: 2009Q2

REPORT INFORMATION
  Report Type: 
  Country: None (occurrence: None)
  Receive Date: 20090605
  Receipt Date: 20090526
  Transmission Date: 20091009
  Serious: Yes (Life-Threatening, Hospitalization)
  Sender: FDA-Public Use
  Company Number: CH-WYE-H09556409

PATIENT
  Age: 85 Year
  Sex: Male

DRUGS (10)
  1. CORDARONE [Suspect]
     Dosage: 200 MG 1X PER 1 DAY ORAL
     Route: 048
  2. ATORVASTATIN CALCIUM [Suspect]
     Indication: MYOCARDIAL ISCHAEMIA
     Dosage: 40 MG 1X PER 1 DAY ORAL
     Route: 048
     Dates: start: 20090123, end: 20090128
  3. ASPIRIN [Concomitant]
  4. DIGOXIN [Concomitant]
  5. PREDNISONE TAB [Concomitant]
  6. NEXIUM [Concomitant]
  7. LEVOTHYROXINE SODIUM [Concomitant]
  8. ENOXAPARIN SODIUM [Concomitant]
  9. HALDOL [Concomitant]
  10. JANUVIA (SITAGLIPTIN) [Concomitant]

REACTIONS (4)
  - DRUG INTERACTION [None]
  - PARAPLEGIA [None]
  - RENAL FAILURE [None]
  - RHABDOMYOLYSIS [None]
